FAERS Safety Report 4624397-2 (Version None)
Quarter: 2005Q1

REPORT INFORMATION
  Report Type: 
  Country: None (occurrence: None)
  Receive Date: 20050107
  Receipt Date: 20041101
  Transmission Date: 20050727
  Serious: No
  Sender: FDA-Public Use
  Company Number: 235471K04USA

PATIENT
  Age: 56 Year
  Sex: Male

DRUGS (4)
  1. REBIF (INTERFERON BETA) [Suspect]
     Indication: MULTIPLE SCLEROSIS
     Dosage: 44 MCG, 3 IN 1 WEEKS, SUBCUTANEOUS
     Route: 058
     Dates: start: 20030922
  2. MORPHINE [Suspect]
     Indication: MULTIPLE SCLEROSIS
  3. VALIUM [Suspect]
  4. SOLU-MEDROL [Concomitant]

REACTIONS (1)
  - CONSTIPATION [None]
